FAERS Safety Report 8883452 (Version 2)
Quarter: 2012Q4

REPORT INFORMATION
  Report Type: 
  Country: US (occurrence: US)
  Receive Date: 20121102
  Receipt Date: 20121206
  Transmission Date: 20130627
  Serious: Yes (Hospitalization)
  Sender: FDA-Public Use
  Company Number: US-UCBSA-069908

PATIENT
  Age: 62 Year
  Sex: Female
  Weight: 74.84 kg

DRUGS (9)
  1. CIMZIA [Suspect]
     Indication: RHEUMATOID ARTHRITIS
     Dates: start: 20121023
  2. CIMZIA [Suspect]
     Indication: OSTEOARTHRITIS
     Dates: start: 20121023
  3. FOLIC ACID [Concomitant]
  4. PREDNISONE [Concomitant]
  5. CALCIUM [Concomitant]
  6. VITAMIN D [Concomitant]
  7. CIMBALTA [Concomitant]
  8. METHOTREXATE [Concomitant]
  9. PREVASTATIN [Concomitant]

REACTIONS (5)
  - Road traffic accident [Unknown]
  - Haematoma [Recovered/Resolved]
  - Musculoskeletal stiffness [Not Recovered/Not Resolved]
  - Myalgia [Not Recovered/Not Resolved]
  - Dizziness [Not Recovered/Not Resolved]
